FAERS Safety Report 4679562-5 (Version None)
Quarter: 2005Q2

REPORT INFORMATION
  Report Type: 
  Country: None (occurrence: None)
  Receive Date: 20050602
  Receipt Date: 20050527
  Transmission Date: 20051028
  Serious: Yes (Hospitalization)
  Sender: FDA-Public Use
  Company Number: 200511382EU

PATIENT
  Age: 50 Year
  Sex: Female
  Weight: 85 kg

DRUGS (14)
  1. LANTUS [Suspect]
     Indication: DIABETES MELLITUS
     Route: 058
     Dates: start: 20050301
  2. HUMALOG [Concomitant]
     Indication: DIABETES MELLITUS
     Dates: start: 20050301
  3. ACETYLSALICYLIC ACID [Concomitant]
  4. AMITRIPTYLINE [Concomitant]
  5. BACLOFEN [Concomitant]
  6. DIPYRIDAMOL [Concomitant]
  7. EZETIMIBE [Concomitant]
  8. LISINOPRIL [Concomitant]
  9. GABAPENTIN [Concomitant]
  10. PAROXETINE HCL [Concomitant]
  11. PRAVASTATIN [Concomitant]
  12. CLONAZEPAM [Concomitant]
  13. FLUTICASON [Concomitant]
     Route: 045
  14. LEVONORGESTREL AND ETHINYL ESTRADIOL [Concomitant]
     Dosage: DOSE: 30/50

REACTIONS (3)
  - BLOOD GLUCOSE INCREASED [None]
  - CONFUSIONAL STATE [None]
  - FATIGUE [None]
